FAERS Safety Report 8879195 (Version 1)
Quarter: 2012Q4

REPORT INFORMATION
  Report Type: Spontaneous
  Country: FR (occurrence: None)
  Receive Date: 20121026
  Receipt Date: 20121026
  Transmission Date: 20130627
  Serious: Yes (Hospitalization)
  Sender: FDA-Public Use
  Company Number: DSA_60355_2012

PATIENT
  Age: 46 Year
  Sex: Female

DRUGS (11)
  1. FLAGYL [Suspect]
     Indication: PRODUCT USED FOR UNKNOWN INDICATION
     Dosage: (DF)
     Dates: start: 20120906, end: 20120916
  2. CLAFORAN [Suspect]
     Indication: PRODUCT USED FOR UNKNOWN INDICATION
     Dosage: (DF)
     Dates: start: 20120906, end: 20120916
  3. OFLOCET [Suspect]
     Indication: PRODUCT USED FOR UNKNOWN INDICATION
     Dosage: (DF)
     Dates: start: 20120906, end: 20120916
  4. ABILIFY [Suspect]
     Dosage: DF Oral
     Dates: start: 20120903
  5. THERALENE [Suspect]
     Indication: PRODUCT USED FOR UNKNOWN INDICATION
     Dosage: (DF Oral)
     Dates: start: 20120903
  6. SEROPLEX [Concomitant]
  7. VALIUM [Concomitant]
  8. LOVENOX [Concomitant]
  9. INEXIUM /01479302/ [Concomitant]
  10. SPASFON /00765801/ [Concomitant]
  11. TERCIAN /00759301/ [Concomitant]

REACTIONS (13)
  - Cholestasis [None]
  - Loss of consciousness [None]
  - Toxicity to various agents [None]
  - Incorrect dose administered [None]
  - Respiratory failure [None]
  - Coma [None]
  - Pleural effusion [None]
  - Bronchial obstruction [None]
  - Atelectasis [None]
  - Hydrocholecystis [None]
  - Lipase increased [None]
  - Blood alkaline phosphatase increased [None]
  - Gamma-glutamyltransferase increased [None]
